FAERS Safety Report 5931369-4 (Version None)
Quarter: 2008Q4

REPORT INFORMATION
  Report Type: 
  Country: None (occurrence: None)
  Receive Date: 20081027
  Receipt Date: 20081015
  Transmission Date: 20090506
  Serious: Yes (Hospitalization)
  Sender: FDA-Public Use
  Company Number: FR-ROCHE-591933

PATIENT
  Sex: Female

DRUGS (7)
  1. PEGASYS [Suspect]
     Dosage: FORM: INJECTABLE SOLUTION.
     Route: 058
  2. VIRAFERONPEG [Suspect]
     Dosage: FORM: INJECTABLE SOLUTION.
     Route: 058
  3. REBETOL [Concomitant]
     Indication: HEPATITIS C
     Route: 048
  4. LEVOTHYROX [Concomitant]
  5. OGAST [Concomitant]
  6. DUSPATALIN [Concomitant]
  7. IMOVANE [Concomitant]

REACTIONS (1)
  - PULMONARY FIBROSIS [None]
